FAERS Safety Report 4637055-5 (Version None)
Quarter: 2005Q2

REPORT INFORMATION
  Report Type: 
  Country: None (occurrence: None)
  Receive Date: 20050328
  Receipt Date: 20050106
  Transmission Date: 20051028
  Serious: No
  Sender: FDA-Public Use
  Company Number: USA041285857

PATIENT
  Age: 28 Year
  Sex: Female

DRUGS (2)
  1. STRATTERA [Suspect]
     Indication: ATTENTION DEFICIT/HYPERACTIVITY DISORDER
     Dosage: 60 MG DAY
     Dates: start: 20040920, end: 20041112
  2. KLONOPIN [Concomitant]

REACTIONS (4)
  - ACNE [None]
  - CONSTIPATION [None]
  - SUICIDAL IDEATION [None]
  - URINARY RETENTION [None]
